FAERS Safety Report 10432736 (Version 2)
Quarter: 2014Q3

REPORT INFORMATION
  Report Type: Spontaneous
  Country: US (occurrence: US)
  Receive Date: 20140905
  Receipt Date: 20140905
  Transmission Date: 20150326
  Serious: Yes (Other)
  Sender: FDA-Public Use
  Company Number: US-SUN PHARMACEUTICAL INDUSTRIES LTD-2014SUN01786

PATIENT

DRUGS (10)
  1. PREDNISONE. [Concomitant]
     Active Substance: PREDNISONE
  2. LYRICA [Concomitant]
     Active Substance: PREGABALIN
  3. FENTANYL. [Concomitant]
     Active Substance: FENTANYL
  4. ONDANSETRON. [Suspect]
     Active Substance: ONDANSETRON
     Indication: NAUSEA
     Dosage: 1-2 TABLETS
     Route: 048
  5. METHOTREXATE [Concomitant]
     Active Substance: METHOTREXATE
  6. FORTEO [Concomitant]
     Active Substance: TERIPARATIDE
  7. PHENERGAN [Concomitant]
     Active Substance: PROMETHAZINE HYDROCHLORIDE
     Indication: NAUSEA
     Dosage: 25 MG, UNK
  8. SIMPONI [Concomitant]
     Active Substance: GOLIMUMAB
  9. ATENOLOL. [Concomitant]
     Active Substance: ATENOLOL
  10. FISH OIL [Concomitant]
     Active Substance: FISH OIL

REACTIONS (9)
  - Vomiting [Unknown]
  - Nausea [Unknown]
  - Malaise [Unknown]
  - Haematemesis [Unknown]
  - Product taste abnormal [Unknown]
  - Wrong technique in drug usage process [Unknown]
  - Product quality issue [None]
  - Product substitution issue [Unknown]
  - Tongue blistering [Unknown]

NARRATIVE: CASE EVENT DATE: 201407
